FAERS Safety Report 21288051 (Version 1)
Quarter: 2022Q3

REPORT INFORMATION
  Report Type: Spontaneous
  Country: US (occurrence: US)
  Receive Date: 20220902
  Receipt Date: 20220902
  Transmission Date: 20221027
  Serious: Yes (Other)
  Sender: FDA-Public Use
  Company Number: US-ABBVIE-22K-163-4487678-00

PATIENT
  Sex: Male

DRUGS (3)
  1. SYNTHROID [Suspect]
     Active Substance: LEVOTHYROXINE SODIUM
     Indication: Hyperthyroidism
     Route: 048
  2. LEVOTHYROXINE [Suspect]
     Active Substance: LEVOTHYROXINE
     Indication: Product used for unknown indication
     Route: 048
  3. LEVOXYL [Suspect]
     Active Substance: LEVOTHYROXINE SODIUM
     Indication: Product used for unknown indication
     Route: 065

REACTIONS (17)
  - Myocardial infarction [Unknown]
  - Weight decreased [Unknown]
  - Diarrhoea [Unknown]
  - Temperature intolerance [Unknown]
  - Menstruation irregular [Unknown]
  - Rash [Unknown]
  - Dyspnoea [Unknown]
  - Muscle spasms [Unknown]
  - Headache [Unknown]
  - Irritability [Unknown]
  - Insomnia [Unknown]
  - Tremor [Unknown]
  - Muscular weakness [Unknown]
  - Increased appetite [Unknown]
  - Arrhythmia [Unknown]
  - Nervousness [Unknown]
  - Abdominal pain upper [Unknown]
